FAERS Safety Report 9393386 (Version 1)
Quarter: 2013Q3

REPORT INFORMATION
  Report Type: Spontaneous
  Country: US (occurrence: US)
  Receive Date: 20130710
  Receipt Date: 20130710
  Transmission Date: 20140515
  Serious: Yes (Life-Threatening, Other)
  Sender: FDA-Public Use
  Company Number: PHEH2013US014434

PATIENT
  Sex: Female

DRUGS (7)
  1. DIOVAN [Suspect]
     Dosage: 320 MG, QD
     Route: 048
  2. VERAPAMIL [Concomitant]
     Dosage: 180 MG, UNK
  3. HYDROCHLOROTHIAZID [Concomitant]
     Dosage: 25 MG, UNK
  4. CALCIUM [Concomitant]
  5. VOLTARENE XR [Concomitant]
  6. AZACITIDINE [Concomitant]
     Dosage: 500 MG, UNK
  7. VICODIN [Concomitant]

REACTIONS (3)
  - Limb discomfort [Unknown]
  - Rheumatoid arthritis [Unknown]
  - Pain [Unknown]
